FAERS Safety Report 4323473-1 (Version None)
Quarter: 2004Q1

REPORT INFORMATION
  Report Type: 
  Country: None (occurrence: None)
  Receive Date: 20040325
  Receipt Date: 20040204
  Transmission Date: 20041129
  Serious: Yes (Other)
  Sender: FDA-Public Use
  Company Number: PHFR2004GB00952

PATIENT
  Sex: Female

DRUGS (5)
  1. LAMISIL [Suspect]
     Route: 048
  2. MIRTAZAPINE [Concomitant]
     Route: 065
  3. NICORETTE PATCH [Concomitant]
     Dosage: 15MG/DAY
     Route: 061
  4. MIRTAZAPINE [Concomitant]
     Dosage: 30MG/DAY
     Route: 048
  5. XENICAL [Concomitant]
     Dosage: 30MG/DAY
     Route: 048

REACTIONS (2)
  - DIZZINESS [None]
  - SYNCOPE [None]
